FAERS Safety Report 7818048-3 (Version None)
Quarter: 2011Q4

REPORT INFORMATION
  Report Type: 
  Country: None (occurrence: None)
  Receive Date: 20111017
  Receipt Date: 20110420
  Transmission Date: 20120403
  Serious: Yes (Hospitalization)
  Sender: FDA-Public Use
  Company Number: US-B.I. PHARMACEUTICALS,INC./RIDGEFIELD-2011-BP-09513BP

PATIENT
  Sex: Male

DRUGS (7)
  1. SPIRONOLACTONE [Concomitant]
  2. ASPIRIN [Concomitant]
  3. LISINOPRIL [Concomitant]
  4. CARVEDIL [Concomitant]
  5. PRADAXA [Suspect]
     Indication: ATRIAL FIBRILLATION
  6. LASIX [Concomitant]
  7. LIPITOR [Concomitant]

REACTIONS (6)
  - NAUSEA [None]
  - WEIGHT DECREASED [None]
  - CHEST PAIN [None]
  - MELAENA [None]
  - GASTROINTESTINAL HAEMORRHAGE [None]
  - DEHYDRATION [None]
